FAERS Safety Report 18272324 (Version 1)
Quarter: 2020Q3

REPORT INFORMATION
  Report Type: Spontaneous
  Country: DE (occurrence: DE)
  Receive Date: 20200916
  Receipt Date: 20200916
  Transmission Date: 20201103
  Serious: Yes (Other)
  Sender: FDA-Public Use
  Company Number: DE-BAYER-2020-190555

PATIENT
  Sex: Female

DRUGS (1)
  1. KYLEENA [Suspect]
     Active Substance: LEVONORGESTREL
     Dosage: 17.5 ?G PER DAY CONTINUOUSLY
     Route: 015
     Dates: start: 201707, end: 202007

REACTIONS (11)
  - Heart rate increased [Recovered/Resolved]
  - Night sweats [Recovered/Resolved]
  - Musculoskeletal pain [Recovered/Resolved]
  - Retrograde amnesia [Recovered/Resolved]
  - Visual impairment [Recovered/Resolved]
  - Cardiovascular disorder [Recovered/Resolved]
  - Performance status decreased [Recovered/Resolved]
  - Hyperthyroidism [None]
  - Body temperature decreased [Recovered/Resolved]
  - Fatigue [Recovered/Resolved]
  - Syncope [Recovered/Resolved]
